FAERS Safety Report 6674685-3 (Version None)
Quarter: 2010Q2

REPORT INFORMATION
  Report Type: 
  Country: None (occurrence: None)
  Receive Date: 20100409
  Receipt Date: 20100325
  Transmission Date: 20101027
  Serious: Yes (Other)
  Sender: FDA-Public Use
  Company Number: US-ELI_LILLY_AND_COMPANY-US201004000306

PATIENT
  Sex: Male

DRUGS (2)
  1. EFFIENT [Suspect]
     Dosage: 60 MG, LOADING DOSE
     Dates: start: 20100301, end: 20100301
  2. EFFIENT [Suspect]
     Dosage: 10 MG, DAILY (1/D)
     Dates: start: 20100301

REACTIONS (2)
  - CARDIAC PACEMAKER INSERTION [None]
  - INCISION SITE HAEMORRHAGE [None]
